FAERS Safety Report 25933741 (Version 2)
Quarter: 2025Q4

REPORT INFORMATION
  Report Type: Report from Study
  Country: GB (occurrence: GB)
  Receive Date: 20251017
  Receipt Date: 20251209
  Transmission Date: 20260117
  Serious: Yes (Other)
  Sender: TAKEDA
  Company Number: GB-TAKEDA-2025TUS048009

PATIENT
  Age: 77 Year
  Sex: Male

DRUGS (2)
  1. VEDOLIZUMAB [Suspect]
     Active Substance: VEDOLIZUMAB
     Indication: Colitis ulcerative
     Dosage: 108 MILLIGRAM, Q2WEEKS
     Dates: start: 20250714
  2. VEDOLIZUMAB [Suspect]
     Active Substance: VEDOLIZUMAB

REACTIONS (7)
  - Colitis ulcerative [Unknown]
  - Drug ineffective [Unknown]
  - Injection site bruising [Unknown]
  - Product administration error [Unknown]
  - Tremor [Unknown]
  - Incorrect dose administered [Unknown]
  - Sinusitis [Unknown]
